FAERS Safety Report 22053868 (Version 2)
Quarter: 2023Q1

REPORT INFORMATION
  Report Type: Report from Study
  Country: AU (occurrence: AU)
  Receive Date: 20230302
  Receipt Date: 20230308
  Transmission Date: 20230418
  Serious: Yes (Death)
  Sender: FDA-Public Use
  Company Number: AU-JNJFOC-20220909563

PATIENT
  Age: 59 Year
  Sex: Male
  Weight: 95.2 kg

DRUGS (2)
  1. IBRUTINIB [Suspect]
     Active Substance: IBRUTINIB
     Indication: Waldenstrom^s macroglobulinaemia
     Route: 048
     Dates: start: 20210701, end: 20210928
  2. IBRUTINIB [Suspect]
     Active Substance: IBRUTINIB
     Indication: Waldenstrom^s macroglobulinaemia
     Route: 048
     Dates: start: 20211004, end: 20220827

REACTIONS (1)
  - Capnocytophaga sepsis [Fatal]

NARRATIVE: CASE EVENT DATE: 20220828
